FAERS Safety Report 7393868-0 (Version None)
Quarter: 2011Q1

REPORT INFORMATION
  Report Type: 
  Country: None (occurrence: None)
  Receive Date: 20110330
  Receipt Date: 20110330
  Transmission Date: 20110831
  Serious: Yes (Other)
  Sender: FDA-Public Use
  Company Number: None

PATIENT
  Age: 64 Year
  Sex: Female
  Weight: 43.0917 kg

DRUGS (1)
  1. BONIVA [Suspect]
     Indication: BONE DENSITY DECREASED
     Dosage: ONCE MONTHLY PO
     Route: 048
     Dates: start: 20101101, end: 20110201

REACTIONS (13)
  - NAUSEA [None]
  - PAIN IN EXTREMITY [None]
  - ASTHENIA [None]
  - ABDOMINAL PAIN UPPER [None]
  - MYALGIA [None]
  - ARTHRALGIA [None]
  - MUSCULOSKELETAL PAIN [None]
  - PAIN [None]
  - ABASIA [None]
  - FALL [None]
  - WEIGHT DECREASED [None]
  - DIZZINESS [None]
  - HAND FRACTURE [None]
